FAERS Safety Report 5106199-6 (Version None)
Quarter: 2006Q3

REPORT INFORMATION
  Report Type: 
  Country: None (occurrence: None)
  Receive Date: 20060918
  Receipt Date: 20060828
  Transmission Date: 20061208
  Serious: Yes (Death, Hospitalization)
  Sender: FDA-Public Use
  Company Number: IT-BRISTOL-MYERS SQUIBB COMPANY-13491303

PATIENT
  Age: 83 Year
  Sex: Female

DRUGS (5)
  1. COUMADIN [Suspect]
     Indication: ATRIAL FIBRILLATION
     Route: 048
     Dates: start: 20010101, end: 20060723
  2. ALDACTONE [Concomitant]
     Indication: URINARY TRACT INFECTION
     Dates: start: 20060717, end: 20060724
  3. LASIX [Concomitant]
     Indication: URINARY TRACT INFECTION
     Dates: start: 20060717, end: 20060724
  4. EUTIROX [Concomitant]
     Indication: URINARY TRACT INFECTION
     Dates: start: 20060717, end: 20060724
  5. BACTRIM [Concomitant]
     Indication: URINARY TRACT INFECTION
     Dates: start: 20060717, end: 20060724

REACTIONS (8)
  - ANAEMIA [None]
  - BLEEDING VARICOSE VEIN [None]
  - HAEMATOMA [None]
  - HYPOTENSION [None]
  - INTERNATIONAL NORMALISED RATIO INCREASED [None]
  - PROTHROMBIN TIME PROLONGED [None]
  - SEPTIC SHOCK [None]
  - URINARY TRACT INFECTION [None]
